FAERS Safety Report 13590523 (Version 2)
Quarter: 2017Q2

REPORT INFORMATION
  Report Type: Spontaneous
  Country: US (occurrence: US)
  Receive Date: 20170530
  Receipt Date: 20170619
  Transmission Date: 20170830
  Serious: Yes (Hospitalization)
  Sender: FDA-Public Use
  Company Number: US-ELI_LILLY_AND_COMPANY-US201705005968

PATIENT
  Age: 60 Year
  Sex: Male
  Weight: 67 kg

DRUGS (3)
  1. ADCIRCA [Suspect]
     Active Substance: TADALAFIL
     Indication: PRODUCT USED FOR UNKNOWN INDICATION
     Dosage: UNK UNK, UNKNOWN
     Route: 065
  2. TYVASO [Suspect]
     Active Substance: TREPROSTINIL
     Indication: PULMONARY ARTERIAL HYPERTENSION
     Dosage: UNK, QID
     Route: 055
     Dates: start: 20170329, end: 201705
  3. TYVASO [Suspect]
     Active Substance: TREPROSTINIL
     Dosage: UNK, QID
     Route: 055
     Dates: start: 20170329, end: 201705

REACTIONS (4)
  - Hypotension [Recovered/Resolved]
  - Hypertension [Unknown]
  - Loss of consciousness [Unknown]
  - Fluid overload [Unknown]

NARRATIVE: CASE EVENT DATE: 20170512
